FAERS Safety Report 13682899 (Version 1)
Quarter: 2017Q2

REPORT INFORMATION
  Report Type: Spontaneous
  Country: US (occurrence: US)
  Receive Date: 20170623
  Receipt Date: 20170623
  Transmission Date: 20170830
  Serious: No
  Sender: FDA-Public Use
  Company Number: US-MALLINCKRODT-T201700611

PATIENT
  Sex: Female

DRUGS (6)
  1. H.P. ACTHAR [Suspect]
     Active Substance: CORTICOTROPIN
     Indication: DERMATOMYOSITIS
     Dosage: 80U TWICE WEEKLY
     Route: 065
     Dates: start: 201703
  2. FOLIC ACID. [Concomitant]
     Active Substance: FOLIC ACID
  3. H.P. ACTHAR [Suspect]
     Active Substance: CORTICOTROPIN
     Indication: POLYMYOSITIS
     Dosage: 80U TWICE WEEKLY
     Route: 065
     Dates: start: 201701, end: 20170309
  4. PREDNISONE. [Concomitant]
     Active Substance: PREDNISONE
  5. METHOTREXATE. [Concomitant]
     Active Substance: METHOTREXATE
  6. IRON [Concomitant]
     Active Substance: IRON

REACTIONS (1)
  - Tongue discolouration [Unknown]
